FAERS Safety Report 9969135 (Version 1)
Quarter: 2014Q1

REPORT INFORMATION
  Report Type: Report from Study
  Country: US (occurrence: US)
  Receive Date: 20140306
  Receipt Date: 20140306
  Transmission Date: 20141002
  Serious: No
  Sender: FDA-Public Use
  Company Number: US-ABBVIE-13P-163-1141935-00

PATIENT
  Age: 46 Year
  Sex: Male

DRUGS (4)
  1. HUMIRA [Suspect]
     Indication: COLITIS ULCERATIVE
     Dates: start: 20130701
  2. ASACOL [Concomitant]
     Indication: COLITIS ULCERATIVE
     Dosage: DAILY
  3. BLOOD PRESSURE/DIURETIC [Concomitant]
     Indication: HYPERTENSION
     Dosage: DAILY
  4. ROWASA ENEMA [Concomitant]
     Indication: COLITIS ULCERATIVE
     Dosage: 1-2 TIMES WEEKLY

REACTIONS (1)
  - Injection site haemorrhage [Recovered/Resolved]
